FAERS Safety Report 23673238 (Version 2)
Quarter: 2024Q2

REPORT INFORMATION
  Report Type: Spontaneous
  Country: GB (occurrence: GB)
  Receive Date: 20240326
  Receipt Date: 20240516
  Transmission Date: 20240716
  Serious: Yes (Other)
  Sender: FDA-Public Use
  Company Number: None

PATIENT
  Age: 16 Year
  Sex: Female
  Weight: 58 kg

DRUGS (2)
  1. LEVONORGESTREL [Suspect]
     Active Substance: LEVONORGESTREL
  2. DOXYCYCLINE [Concomitant]
     Active Substance: DOXYCYCLINE
     Indication: Acne cystic
     Dates: start: 20240125

REACTIONS (3)
  - Syncope [Recovered/Resolved]
  - Presyncope [Recovered/Resolved]
  - Dizziness [Recovering/Resolving]

NARRATIVE: CASE EVENT DATE: 20240311
